FAERS Safety Report 8314299-2 (Version None)
Quarter: 2012Q1

REPORT INFORMATION
  Report Type: 
  Country: None (occurrence: None)
  Receive Date: 20120315
  Receipt Date: 20110606
  Transmission Date: 20120608
  Serious: Yes (Other)
  Sender: FDA-Public Use
  Company Number: PHHY2011US24430

PATIENT
  Sex: Female

DRUGS (1)
  1. GILENYA [Suspect]
     Dosage: 0.5MG, QD, ORAL
     Route: 048
     Dates: start: 20110301, end: 20110312

REACTIONS (5)
  - CD4 LYMPHOCYTES DECREASED [None]
  - INFLUENZA [None]
  - COUGH [None]
  - PYREXIA [None]
  - OROPHARYNGEAL PAIN [None]
